FAERS Safety Report 8592961 (Version 3)
Quarter: 2012Q4

REPORT INFORMATION
  Report Type: 
  Country: US (occurrence: US)
  Receive Date: 20120604
  Receipt Date: 20121029
  Transmission Date: 20130627
  Serious: Yes (Hospitalization, Other)
  Sender: FDA-Public Use
  Company Number: US-BIOGENIDEC-2012BI019192

PATIENT
  Age: 61 Year
  Sex: Male

DRUGS (5)
  1. TYSABRI [Suspect]
     Indication: MULTIPLE SCLEROSIS
     Route: 042
     Dates: start: 20070809, end: 20120203
  2. MEDICATION (NOS) [Concomitant]
     Indication: DIABETES MELLITUS
  3. BACLOFEN [Concomitant]
  4. CYCLOBENZAPRINE [Concomitant]
  5. TIZANIDINE [Concomitant]

REACTIONS (5)
  - Varices oesophageal [Recovered/Resolved]
  - Anaemia [Recovered/Resolved]
  - Hepatic cirrhosis [Recovered/Resolved]
  - Hepatic lesion [Unknown]
  - Weight decreased [Unknown]
